FAERS Safety Report 17165787 (Version 2)
Quarter: 2020Q1

REPORT INFORMATION
  Report Type: Spontaneous
  Country: DE (occurrence: DE)
  Receive Date: 20191217
  Receipt Date: 20200211
  Transmission Date: 20200409
  Serious: Yes (Other)
  Sender: FDA-Public Use
  Company Number: NVSC2019DE069283

PATIENT
  Sex: Male

DRUGS (5)
  1. METOPROLOL SUCCINATE. [Concomitant]
     Active Substance: METOPROLOL SUCCINATE
     Indication: PRODUCT USED FOR UNKNOWN INDICATION
     Dosage: 47.5 MG (1/2 IN MORNING, 1/2 IN EVENING)
     Route: 065
  2. TORASEMIDE [Concomitant]
     Active Substance: TORSEMIDE
     Indication: PRODUCT USED FOR UNKNOWN INDICATION
     Dosage: UNK (UPSCALING)
     Route: 065
     Dates: start: 20190626
  3. DIGITOXIN [Concomitant]
     Active Substance: DIGITOXIN
     Indication: PRODUCT USED FOR UNKNOWN INDICATION
     Dosage: 0.07 MG, QD
     Route: 065
  4. ENTRESTO [Suspect]
     Active Substance: SACUBITRIL\VALSARTAN
     Indication: PRODUCT USED FOR UNKNOWN INDICATION
     Dosage: 2 DF, QD
     Route: 065
     Dates: start: 20190626, end: 20190709
  5. TORASEMIDE [Concomitant]
     Active Substance: TORSEMIDE
     Dosage: UNK UNK, BID
     Route: 065

REACTIONS (11)
  - Weight increased [Recovered/Resolved]
  - White blood cell count decreased [Unknown]
  - Cardioactive drug level [Unknown]
  - Erythema [Recovered/Resolved]
  - Glomerular filtration rate decreased [Unknown]
  - Aspartate aminotransferase increased [Unknown]
  - Platelet function test [Unknown]
  - Localised oedema [Recovered/Resolved]
  - Blood bicarbonate abnormal [Unknown]
  - Blood bilirubin abnormal [Unknown]
  - Prothrombin time [Unknown]

NARRATIVE: CASE EVENT DATE: 201906
